FAERS Safety Report 9189853 (Version 3)
Quarter: 2013Q2

REPORT INFORMATION
  Report Type: Spontaneous
  Country: JP (occurrence: JP)
  Receive Date: 20130326
  Receipt Date: 20130422
  Transmission Date: 20140414
  Serious: Yes (Other)
  Sender: FDA-Public Use
  Company Number: JP-AMGEN-JPNSP2013019212

PATIENT
  Age: 56 Year
  Sex: Male

DRUGS (19)
  1. ARANESP [Suspect]
     Indication: NEPHROGENIC ANAEMIA
     Dosage: 20 MUG, QD
     Route: 065
     Dates: start: 20070830, end: 20070830
  2. ARANESP [Suspect]
     Dosage: 10 MUG, QD
     Route: 065
     Dates: start: 20080821, end: 20080821
  3. ARANESP [Suspect]
     Dosage: 20 MUG, QD
     Route: 065
     Dates: start: 20090811, end: 20090811
  4. ARANESP [Suspect]
     Dosage: 60 MUG, QD
     Route: 040
     Dates: start: 20120823, end: 20120823
  5. ARANESP [Suspect]
     Dosage: 120 MUG, QD
     Route: 040
     Dates: start: 20121016, end: 20121016
  6. BAYASPIRIN [Concomitant]
     Dosage: 100 MG, QD
     Route: 048
  7. ALLOPURINOL [Concomitant]
     Dosage: 100 MG, QD
     Route: 048
  8. PLAVIX [Concomitant]
     Dosage: 75 MG, QD
     Route: 048
  9. LIPITOR [Concomitant]
     Dosage: 10 MG, QD
     Route: 048
  10. PURSENNID [Concomitant]
     Dosage: 12 MG, 1X/WEEK
     Route: 048
  11. PARIET [Concomitant]
     Dosage: 1 DF, 1X/WEEK
     Route: 048
  12. SIGMART [Concomitant]
     Dosage: 1 DF, TID
     Route: 048
  13. PRECIPITATED CALCIUM CARBONATE [Concomitant]
     Dosage: 2 DF, TID
     Route: 048
  14. FOSRENOL [Concomitant]
     Dosage: 2 DF, TID
     Route: 048
  15. ESPO [Concomitant]
     Dosage: 4500 IU, QD
     Route: 065
     Dates: start: 20061114
  16. ESPO [Concomitant]
     Dosage: 1500 IU, TID
     Route: 065
     Dates: start: 20061205
  17. ESPO [Concomitant]
     Dosage: 750 IU, TID
     Route: 065
     Dates: start: 20070607
  18. EPOGIN INJ. 1500,3000 [Concomitant]
     Dosage: 750 IU, 1X/WEEK
     Route: 065
     Dates: start: 20081118
  19. EPOGIN INJ. 1500,3000 [Concomitant]
     Dosage: 3000 IU, QD
     Route: 065
     Dates: start: 20090808

REACTIONS (2)
  - Aplasia pure red cell [Recovered/Resolved]
  - Drug ineffective [Recovered/Resolved]
